FAERS Safety Report 18242349 (Version 1)
Quarter: 2020Q3

REPORT INFORMATION
  Report Type: Spontaneous
  Country: FR (occurrence: FR)
  Receive Date: 20200908
  Receipt Date: 20200908
  Transmission Date: 20201103
  Serious: Yes (Death)
  Sender: FDA-Public Use
  Company Number: FR-PFIZER INC-2020345615

PATIENT
  Age: 87 Year
  Sex: Female
  Weight: 66 kg

DRUGS (13)
  1. ESCITALOPRAM [Concomitant]
     Active Substance: ESCITALOPRAM OXALATE
  2. OXALIPLATINE ACCORD [Suspect]
     Active Substance: OXALIPLATIN
     Indication: ADULT T-CELL LYMPHOMA/LEUKAEMIA
     Dosage: 160 MG, SINGLE
     Route: 041
     Dates: start: 20200723, end: 20200723
  3. AVLOCARDYL [PROPRANOLOL HYDROCHLORIDE] [Concomitant]
     Active Substance: PROPRANOLOL HYDROCHLORIDE
  4. SERESTA [Concomitant]
     Active Substance: OXAZEPAM
  5. KARDEGIC [Concomitant]
     Active Substance: ASPIRIN DL-LYSINE
  6. SITAGLIPTINE [Concomitant]
     Active Substance: SITAGLIPTIN
  7. MOVICOL [Concomitant]
     Active Substance: POLYETHYLENE GLYCOL 3350\POTASSIUM CHLORIDE\SODIUM BICARBONATE\SODIUM CHLORIDE
  8. GEMCITABINE. [Suspect]
     Active Substance: GEMCITABINE
     Indication: ADULT T-CELL LYMPHOMA/LEUKAEMIA
     Dosage: 1600 MG, SINGLE
     Route: 041
     Dates: start: 20200723, end: 20200723
  9. BROMAZEPAM [Concomitant]
     Active Substance: BROMAZEPAM
  10. LEVOTHYROX [Concomitant]
     Active Substance: LEVOTHYROXINE
  11. REPAGLINIDE. [Concomitant]
     Active Substance: REPAGLINIDE
  12. TRUXIMA [Suspect]
     Active Substance: RITUXIMAB-ABBS
     Indication: ADULT T-CELL LYMPHOMA/LEUKAEMIA
     Dosage: 700 MG, SINGLE
     Route: 041
     Dates: start: 20200722, end: 20200722
  13. SPASFON [PHLOROGLUCINOL;TRIMETHYLPHLOROGLUCINOL] [Concomitant]
     Active Substance: PHLOROGLUCINOL\1,3,5-TRIMETHOXYBENZENE

REACTIONS (5)
  - Pulmonary embolism [Fatal]
  - Transaminases increased [Fatal]
  - Shock [Fatal]
  - Agitation [Fatal]
  - Acute respiratory failure [Fatal]

NARRATIVE: CASE EVENT DATE: 20200723
